FAERS Safety Report 4299644-X (Version None)
Quarter: 2004Q1

REPORT INFORMATION
  Report Type: 
  Country: None (occurrence: None)
  Receive Date: 20040217
  Receipt Date: 20040209
  Transmission Date: 20041129
  Serious: Yes (Life-Threatening, Hospitalization)
  Sender: FDA-Public Use
  Company Number: 2004198317JP

PATIENT
  Age: 11 Month
  Sex: Male
  Weight: 3.1 kg

DRUGS (12)
  1. ALDACTONE [Suspect]
     Indication: CARDIAC FAILURE
     Dosage: 1.5 MG, QD, ORAL
     Route: 048
     Dates: start: 20010203, end: 20020410
  2. LASIX [Suspect]
     Indication: CARDIAC FAILURE
     Dosage: QD, ORAL
     Route: 048
     Dates: start: 20010123, end: 20020410
  3. GLYCEOL [Concomitant]
  4. INOVAN (DOPAMINE HYDROCHLORIDE) [Concomitant]
  5. PITRESSIN (VASOPRESSIN INJECTION) [Concomitant]
  6. GASTER [Concomitant]
  7. CARBENIN (BETAMIPRON, PANIPENEM) [Concomitant]
  8. FLUMARIN (FLOMOXEF SODIUM) [Concomitant]
  9. LEVOTHYROXINE SODIUM [Concomitant]
  10. BOSMIN (EPINEPHRINE HYDROCHLORIDE) [Concomitant]
  11. DECADRON [Concomitant]
  12. INTAL [Concomitant]

REACTIONS (14)
  - CALCINOSIS [None]
  - CARDIO-RESPIRATORY ARREST [None]
  - CEREBRAL ATROPHY [None]
  - DYSPHAGIA [None]
  - EXPRESSIVE LANGUAGE DISORDER [None]
  - HYPERCALCAEMIA [None]
  - MUSCLE CONTRACTURE [None]
  - OSTEOPENIA [None]
  - PYELECTASIA [None]
  - RENAL DISORDER [None]
  - RESPIRATORY SYNCYTIAL VIRUS INFECTION [None]
  - SPEECH DISORDER [None]
  - URINARY TRACT INFECTION [None]
  - VESICOURETERIC REFLUX [None]
